FAERS Safety Report 7516093-9 (Version None)
Quarter: 2011Q2

REPORT INFORMATION
  Report Type: 
  Country: None (occurrence: None)
  Receive Date: 20110601
  Receipt Date: 20110520
  Transmission Date: 20111010
  Serious: Yes (Hospitalization)
  Sender: FDA-Public Use
  Company Number: JP-ACTELION-A-CH2011-49181

PATIENT
  Sex: Female
  Weight: 76 kg

DRUGS (5)
  1. TRAPIDIL [Concomitant]
  2. ALLOPURINOL [Concomitant]
  3. OXYGEN [Concomitant]
  4. TRACLEER [Suspect]
     Indication: PULMONARY ARTERIAL HYPERTENSION
     Dosage: 31.25 MG, BID
     Route: 048
     Dates: start: 20060110
  5. CARVEDILOL [Concomitant]

REACTIONS (1)
  - PULMONARY HAEMORRHAGE [None]
